FAERS Safety Report 9325596 (Version 9)
Quarter: 2014Q1

REPORT INFORMATION
  Report Type: Report from Study
  Country: ES (occurrence: ES)
  Receive Date: 20130604
  Receipt Date: 20140214
  Transmission Date: 20141002
  Serious: Yes (Other)
  Sender: FDA-Public Use
  Company Number: ES-ROCHE-1231650

PATIENT
  Age: 39 Year
  Sex: Female
  Weight: 52 kg

DRUGS (8)
  1. RIBAVIRIN [Suspect]
     Indication: CHRONIC HEPATITIS C
     Route: 048
     Dates: start: 20130312, end: 20130516
  2. RIBAVIRIN [Suspect]
     Dosage: DOSE REDUCED
     Route: 048
     Dates: start: 20130517
  3. BLINDED BI 207127 [Suspect]
     Indication: CHRONIC HEPATITIS C
     Route: 048
     Dates: start: 20130312
  4. BI 201335 (HCV PROTEASE INHIBITOR) [Suspect]
     Indication: CHRONIC HEPATITIS C
     Route: 048
     Dates: start: 20130312
  5. OMEPRAZOLE [Concomitant]
     Indication: GASTRIC DISORDER
     Route: 048
     Dates: start: 20130312
  6. DOMPERIDONE [Concomitant]
     Indication: VOMITING
     Route: 048
     Dates: start: 20130327, end: 20130507
  7. METOCLOPRAMIDE [Concomitant]
     Indication: VOMITING
     Route: 065
     Dates: start: 20130312, end: 20130506
  8. CLEBOPRIDE [Concomitant]
     Indication: VOMITING
     Dosage: DOSE: 0.0625 MG/ML
     Route: 065
     Dates: start: 20130507

REACTIONS (2)
  - Thrombocytosis [Recovered/Resolved]
  - Anaemia [Recovered/Resolved]
